FAERS Safety Report 9646219 (Version 2)
Quarter: 2014Q1

REPORT INFORMATION
  Report Type: Spontaneous
  Country: GB (occurrence: None)
  Receive Date: 20131024
  Receipt Date: 20140324
  Transmission Date: 20141002
  Serious: Yes (Hospitalization)
  Sender: FDA-Public Use
  Company Number: AUR-APL-2013-08631

PATIENT
  Age: 67 Year
  Sex: Female
  Weight: 46 kg

DRUGS (5)
  1. GABAPENTIN (GABAPENTIN) [Suspect]
     Indication: BACK PAIN
     Route: 048
  2. ADIZEM-XL (DILTIAZEM HYDROCHLORIDE) [Concomitant]
  3. OXYCONTIN (OXYCODONE HYDROCHLORIDE) [Concomitant]
  4. QVAR (BECLOMETASONE DIPROPIONATE) [Concomitant]
  5. VENTOLIN (SALBUTAMOL) [Concomitant]

REACTIONS (1)
  - Colitis ischaemic [None]
